FAERS Safety Report 13973784 (Version 2)
Quarter: 2017Q3

REPORT INFORMATION
  Report Type: Spontaneous
  Country: BR (occurrence: BR)
  Receive Date: 20170915
  Receipt Date: 20170920
  Transmission Date: 20171128
  Serious: Yes (Hospitalization)
  Sender: FDA-Public Use
  Company Number: BR-B.I. PHARMACEUTICALS,INC./RIDGEFIELD-2017-BI-050317

PATIENT
  Age: 76 Year
  Sex: Male
  Weight: 65 kg

DRUGS (5)
  1. MICARDIS [Suspect]
     Active Substance: TELMISARTAN
     Dosage: STRENGTH: 80/5 MG ; UNIT AND DAILY DOSE: 160/10 MG; THERAPY START AND END DATE: 12-SEP-2017
     Route: 048
  2. MICARDIS [Suspect]
     Active Substance: TELMISARTAN
     Indication: HYPERTENSION
     Dosage: STRENGTH, UNIT AND DAILY DOSE: 80/5 MG
     Route: 048
  3. HIDRION [Concomitant]
     Indication: HYPERTENSION
     Route: 048
  4. ENCICARB [Concomitant]
     Indication: BLADDER CANCER
     Route: 043
  5. ATENSINA [Concomitant]
     Active Substance: CLONIDINE
     Indication: HYPERTENSION
     Route: 048

REACTIONS (5)
  - Fall [Recovered/Resolved]
  - Accidental overdose [Recovered/Resolved]
  - Weight decreased [Recovered/Resolved]
  - Spinal pain [Recovered/Resolved]
  - Iliac artery occlusion [Recovered/Resolved]

NARRATIVE: CASE EVENT DATE: 201306
